FAERS Safety Report 24153979 (Version 1)
Quarter: 2024Q3

REPORT INFORMATION
  Report Type: Spontaneous
  Country: US (occurrence: US)
  Receive Date: 20240730
  Receipt Date: 20240730
  Transmission Date: 20241017
  Serious: Yes (Other)
  Sender: MYLAN
  Company Number: US-MYLANLABS-2024M1069593

PATIENT
  Age: 84 Year
  Sex: Female
  Weight: 68.95 kg

DRUGS (5)
  1. TYRVAYA [Suspect]
     Active Substance: VARENICLINE TARTRATE
     Indication: Dry eye
     Dosage: 0.03 MILLIGRAM (1 SPRAY EACH NOSTRIL)
     Route: 045
     Dates: start: 202403, end: 20240623
  2. LISINOPRIL [Concomitant]
     Active Substance: LISINOPRIL
     Indication: Blood pressure measurement
     Dosage: 2.5 MILLIGRAM
     Route: 065
  3. INDERAL [Concomitant]
     Active Substance: PROPRANOLOL HYDROCHLORIDE
     Dosage: 20 MILLIGRAM
     Route: 065
  4. CYCLOSPORINE [Concomitant]
     Active Substance: CYCLOSPORINE
     Indication: Inflammation
     Dosage: UNK
     Route: 065
  5. DOXYCYCLINE [Concomitant]
     Active Substance: DOXYCYCLINE\DOXYCYCLINE HYCLATE
     Indication: Antibiotic therapy
     Dosage: 50 MILLIGRAM
     Route: 065

REACTIONS (7)
  - Suicidal ideation [Recovered/Resolved]
  - Visual impairment [Recovered/Resolved]
  - Irritability [Recovered/Resolved]
  - Insomnia [Recovered/Resolved]
  - Sneezing [Recovered/Resolved]
  - Nasal discomfort [Recovered/Resolved]
  - Product dose omission issue [Unknown]

NARRATIVE: CASE EVENT DATE: 20240301
